FAERS Safety Report 12959806 (Version 1)
Quarter: 2016Q4

REPORT INFORMATION
  Report Type: Spontaneous
  Country: CN (occurrence: CN)
  Receive Date: 20161121
  Receipt Date: 20161121
  Transmission Date: 20170207
  Serious: Yes (Other)
  Sender: FDA-Public Use
  Company Number: CN-GLAXOSMITHKLINE-CN2016GSK170222

PATIENT
  Age: 67 Year
  Sex: Male
  Weight: 65 kg

DRUGS (3)
  1. FORTUM [Suspect]
     Active Substance: CEFTAZIDIME
     Indication: LUNG INFECTION
     Dosage: 2 G, BID
     Route: 042
     Dates: start: 20160830, end: 20160903
  2. CEFUROXIME. [Suspect]
     Active Substance: CEFUROXIME
     Indication: LUNG INFECTION
     Dosage: UNK
     Dates: start: 20160830, end: 20160830
  3. SODIUM CHLORIDE. [Suspect]
     Active Substance: SODIUM CHLORIDE
     Indication: PRODUCT USED FOR UNKNOWN INDICATION
     Dosage: UNK
     Route: 042
     Dates: start: 20160830, end: 20160830

REACTIONS (1)
  - Hepatic function abnormal [Not Recovered/Not Resolved]

NARRATIVE: CASE EVENT DATE: 20160901
